FAERS Safety Report 18598500 (Version 1)
Quarter: 2020Q4

REPORT INFORMATION
  Report Type: Spontaneous
  Country: US (occurrence: US)
  Receive Date: 20201210
  Receipt Date: 20201210
  Transmission Date: 20210114
  Serious: Yes (Other)
  Sender: FDA-Public Use
  Company Number: US-GILEAD-2020-0507122

PATIENT

DRUGS (1)
  1. TRUVADA [Suspect]
     Active Substance: EMTRICITABINE\TENOFOVIR DISOPROXIL FUMARATE
     Indication: PRODUCT USED FOR UNKNOWN INDICATION
     Dosage: UNK
     Route: 048
     Dates: start: 201207, end: 202008

REACTIONS (7)
  - Bone density decreased [Unknown]
  - Renal failure [Unknown]
  - Osteonecrosis [Unknown]
  - Renal tubular necrosis [Unknown]
  - Bone loss [Unknown]
  - Tooth loss [Unknown]
  - Chronic kidney disease [Unknown]
